FAERS Safety Report 4333074-7 (Version None)
Quarter: 2004Q2

REPORT INFORMATION
  Report Type: 
  Country: None (occurrence: None)
  Receive Date: 20040401
  Receipt Date: 20040319
  Transmission Date: 20050107
  Serious: Yes (Other)
  Sender: FDA-Public Use
  Company Number: 2004-06829

PATIENT
  Sex: Male
  Weight: 2.093 kg

DRUGS (4)
  1. VIREAD [Suspect]
     Dosage: 300 MG, ONCE A DAY, ORAL
     Route: 048
     Dates: start: 20030501, end: 20040311
  2. DIDANOSINE (DIDANOSINE) [Concomitant]
  3. LAMIVUDINE (LAMIVUDINE) [Concomitant]
  4. COMBIVIR [Concomitant]

REACTIONS (4)
  - CONGENITAL HYDRONEPHROSIS [None]
  - DRUG EXPOSURE DURING PREGNANCY [None]
  - PREMATURE BABY [None]
  - ULTRASOUND KIDNEY ABNORMAL [None]
